FAERS Safety Report 4565016-3 (Version None)
Quarter: 2005Q1

REPORT INFORMATION
  Report Type: 
  Country: None (occurrence: None)
  Receive Date: 20050126
  Receipt Date: 20050114
  Transmission Date: 20050727
  Serious: Yes (Other)
  Sender: FDA-Public Use
  Company Number: 2004110623

PATIENT
  Age: 59 Year
  Sex: Male
  Weight: 85 kg

DRUGS (2)
  1. LYRICA [Suspect]
     Indication: FIBROMYALGIA
     Dosage: 150 MG, ORAL
     Route: 048
     Dates: start: 20041119, end: 20041201
  2. OXYCODONE HCL [Concomitant]

REACTIONS (12)
  - BACK PAIN [None]
  - BURNING SENSATION [None]
  - DIZZINESS [None]
  - FACIAL PALSY [None]
  - FEAR [None]
  - FEELING COLD [None]
  - HEARING IMPAIRED [None]
  - HYPOAESTHESIA [None]
  - MUSCLE SPASMS [None]
  - PAIN IN EXTREMITY [None]
  - VISUAL DISTURBANCE [None]
  - VOMITING [None]
